FAERS Safety Report 8463465-4 (Version None)
Quarter: 2012Q2

REPORT INFORMATION
  Report Type: 
  Country: None (occurrence: None)
  Receive Date: 20120625
  Receipt Date: 20120618
  Transmission Date: 20120825
  Serious: No
  Sender: FDA-Public Use
  Company Number: US-ASTRAZENECA-2011SE58824

PATIENT
  Age: 54 Year
  Sex: Female

DRUGS (2)
  1. SEROQUEL [Suspect]
     Route: 048
  2. SEROQUEL [Suspect]
     Route: 048

REACTIONS (7)
  - BIPOLAR DISORDER [None]
  - FOOD POISONING [None]
  - DRUG DOSE OMISSION [None]
  - OSTEOARTHRITIS [None]
  - VOMITING [None]
  - ARTHRITIS [None]
  - INSOMNIA [None]
